FAERS Safety Report 18404801 (Version 1)
Quarter: 2020Q4

REPORT INFORMATION
  Report Type: Spontaneous
  Country: US (occurrence: US)
  Receive Date: 20201020
  Receipt Date: 20201020
  Transmission Date: 20210114
  Serious: Yes (Hospitalization)
  Sender: FDA-Public Use
  Company Number: None

PATIENT
  Age: 78 Year
  Sex: Female

DRUGS (5)
  1. FLUTICASONE SPR [Concomitant]
  2. DOXYCYCL HYC [Concomitant]
  3. BENZOYL PER LIQ [Concomitant]
  4. CLINDAMYCIN. [Concomitant]
     Active Substance: CLINDAMYCIN
  5. VOTRIENT [Suspect]
     Active Substance: PAZOPANIB HYDROCHLORIDE
     Indication: RENAL CANCER
     Route: 048
     Dates: start: 20190717

REACTIONS (2)
  - Haematochezia [None]
  - Therapy interrupted [None]

NARRATIVE: CASE EVENT DATE: 20200830
